FAERS Safety Report 20208434 (Version 1)
Quarter: 2021Q4

REPORT INFORMATION
  Report Type: Report from Study
  Country: BR (occurrence: BR)
  Receive Date: 20211220
  Receipt Date: 20211220
  Transmission Date: 20220304
  Serious: Yes (Hospitalization)
  Sender: FDA-Public Use
  Company Number: BR-NOVARTISPH-NVSC2021BR274928

PATIENT
  Age: 76 Year
  Sex: Male
  Weight: 96 kg

DRUGS (4)
  1. AMLODIPINE\VALSARTAN [Suspect]
     Active Substance: AMLODIPINE\VALSARTAN
     Indication: Cardiac dysfunction
     Dosage: 1 DOSAGE FORM, QD (APPROX 1 YEAR TO YEAR AND HALF, 2019)
     Route: 048
     Dates: end: 20211118
  2. AMLODIPINE\VALSARTAN [Suspect]
     Active Substance: AMLODIPINE\VALSARTAN
     Indication: Hypertension
  3. HYDROCHLOROTHIAZIDE [Concomitant]
     Active Substance: HYDROCHLOROTHIAZIDE
     Indication: Renal disorder
     Dosage: 1 DOSAGE FORM, QD
     Route: 048
     Dates: start: 202111
  4. ROSUVASTATIN CALCIUM [Concomitant]
     Active Substance: ROSUVASTATIN CALCIUM
     Indication: Hypertension
     Dosage: 1 DOSAGE FORM, QD (STARTED MORE THAN YEARS AGO)
     Route: 048

REACTIONS (1)
  - Malaise [Recovered/Resolved]

NARRATIVE: CASE EVENT DATE: 20210911
